FAERS Safety Report 4492073-5 (Version None)
Quarter: 2004Q4

REPORT INFORMATION
  Report Type: 
  Country: None (occurrence: None)
  Receive Date: 20041029
  Receipt Date: 20041013
  Transmission Date: 20050328
  Serious: Yes (Life-Threatening)
  Sender: FDA-Public Use
  Company Number: 2004-BP-09957YA

PATIENT
  Age: 73 Year
  Sex: Male

DRUGS (1)
  1. TAMSULOSIN HYDROCHLORIDE (TAMSULOSIN HYDROCHLORIDE) [Suspect]
     Indication: BENIGN PROSTATIC HYPERPLASIA
     Dosage: 0.4 MG
     Route: 048

REACTIONS (8)
  - COUGH [None]
  - DIABETES MELLITUS [None]
  - DYSPHAGIA [None]
  - EROSIVE OESOPHAGITIS [None]
  - HYPERAEMIA [None]
  - PHARYNGEAL EROSION [None]
  - PHARYNGEAL OEDEMA [None]
  - PHARYNGEAL STENOSIS [None]
